FAERS Safety Report 9995527 (Version 1)
Quarter: 2014Q1

REPORT INFORMATION
  Report Type: Spontaneous
  Country: US (occurrence: None)
  Receive Date: 20140225
  Receipt Date: 20140225
  Transmission Date: 20141002
  Serious: Yes (Hospitalization)
  Sender: FDA-Public Use
  Company Number: 2012-706

PATIENT
  Age: 66 Year
  Sex: Female

DRUGS (18)
  1. PRIALT [Suspect]
     Indication: INTERVERTEBRAL DISC DEGENERATION
     Dosage: UNK MCG, ONCE/HOUR, INJECTION, INTRATHECAL
     Dates: start: 2011
  2. PRIALT [Suspect]
     Indication: PAIN
     Dosage: UNK MCG, ONCE/HOUR, INJECTION, INTRATHECAL
     Dates: start: 2011
  3. PRIALT [Suspect]
     Indication: SPINAL PAIN
     Dosage: UNK MCG, ONCE/HOUR, INJECTION, INTRATHECAL
     Dates: start: 2011
  4. PRIALT [Suspect]
     Indication: POST LAMINECTOMY SYNDROME
     Dosage: UNK MCG, ONCE/HOUR, INJECTION, INTRATHECAL
     Dates: start: 2011
  5. CLONIDINE (CLONIDINE) INJECTION [Suspect]
     Indication: INTERVERTEBRAL DISC DEGENERATION
     Route: 037
  6. CLONIDINE (CLONIDINE) INJECTION [Suspect]
     Indication: PAIN
     Route: 037
  7. CLONIDINE (CLONIDINE) INJECTION [Suspect]
     Indication: SPINAL PAIN
     Route: 037
  8. CLONIDINE (CLONIDINE) INJECTION [Suspect]
     Indication: POST LAMINECTOMY SYNDROME
     Route: 037
  9. BUPIVACAINE HYDROCHLORIDE [Suspect]
     Indication: INTERVERTEBRAL DISC DEGENERATION
     Route: 037
  10. BUPIVACAINE HYDROCHLORIDE [Suspect]
     Indication: PAIN
     Route: 037
  11. BUPIVACAINE HYDROCHLORIDE [Suspect]
     Indication: SPINAL PAIN
     Route: 037
  12. BUPIVACAINE HYDROCHLORIDE [Suspect]
     Indication: POST LAMINECTOMY SYNDROME
     Route: 037
  13. DILAUDID (HYDROMORPHONE HYDROCHLORIDE) INJECTION [Suspect]
     Indication: INTERVERTEBRAL DISC DEGENERATION
     Route: 037
  14. DILAUDID (HYDROMORPHONE HYDROCHLORIDE) INJECTION [Suspect]
     Indication: PAIN
     Route: 037
  15. DILAUDID (HYDROMORPHONE HYDROCHLORIDE) INJECTION [Suspect]
     Indication: SPINAL PAIN
     Route: 037
  16. DILAUDID (HYDROMORPHONE HYDROCHLORIDE) INJECTION [Suspect]
     Indication: POST LAMINECTOMY SYNDROME
     Route: 037
  17. DEPAKOTE (VALPROATE SEMISODIUM) [Concomitant]
  18. RISPERDAL [Concomitant]

REACTIONS (1)
  - Mental status changes [None]
